FAERS Safety Report 16242547 (Version 1)
Quarter: 2019Q2

REPORT INFORMATION
  Report Type: Other
  Country: DE (occurrence: DE)
  Receive Date: 20190426
  Receipt Date: 20190426
  Transmission Date: 20190711
  Serious: Yes (Other)
  Sender: FDA-Public Use
  Company Number: DE-MACLEODS PHARMACEUTICALS US LTD-MAC2019021038

PATIENT

DRUGS (1)
  1. LEVOFLOXACIN. [Suspect]
     Active Substance: LEVOFLOXACIN
     Indication: PRODUCT USED FOR UNKNOWN INDICATION
     Dosage: UNK, REPEATS CIPRO 500, LEVO 500 ONCE
     Route: 048
     Dates: end: 20170401

REACTIONS (12)
  - Retinopathy [Recovered/Resolved]
  - Burning sensation [Recovered/Resolved]
  - Pain [Not Recovered/Not Resolved]
  - Tinnitus [Recovered/Resolved]
  - Migraine [Recovered/Resolved]
  - Tendon disorder [Recovered/Resolved]
  - Muscle twitching [Not Recovered/Not Resolved]
  - Vitreous opacities [Recovered/Resolved]
  - Arthralgia [Recovered/Resolved]
  - Headache [Unknown]
  - Paraesthesia [Recovered/Resolved]
  - Tendon pain [Recovered/Resolved]

NARRATIVE: CASE EVENT DATE: 20150601
